FAERS Safety Report 9380147 (Version 2)
Quarter: 2013Q3

REPORT INFORMATION
  Report Type: Spontaneous
  Country: IT (occurrence: None)
  Receive Date: 20130628
  Receipt Date: 20130709
  Transmission Date: 20140515
  Serious: Yes (Hospitalization, Other)
  Sender: FDA-Public Use
  Company Number: AUR-APL-2013-05271

PATIENT
  Age: 67 Year
  Sex: Male

DRUGS (3)
  1. RAMIPRIL [Suspect]
     Indication: PRODUCT USED FOR UNKNOWN INDICATION
     Route: 048
  2. HALCION [Suspect]
     Indication: PRODUCT USED FOR UNKNOWN INDICATION
     Dosage: 4 TABLETS IN THE AFTERNOON AND 5 TABLETS IN THE EVENING
     Route: 048
     Dates: start: 20130507, end: 20130507
  3. CARDIOASPIRIN (ACETYLSALICYLIC ACID) [Suspect]
     Indication: PRODUCT USED FOR UNKNOWN INDICATION
     Route: 048
     Dates: start: 20130507, end: 20130507

REACTIONS (4)
  - Sopor [None]
  - Somnolence [None]
  - Drug abuse [None]
  - Ill-defined disorder [None]
